FAERS Safety Report 6900686-3 (Version None)
Quarter: 2010Q3

REPORT INFORMATION
  Report Type: 
  Country: None (occurrence: None)
  Receive Date: 20100803
  Receipt Date: 20100726
  Transmission Date: 20110219
  Serious: Yes (Congenital Anomaly)
  Sender: FDA-Public Use
  Company Number: GXKR2010GB08343

PATIENT
  Age: 6 Month

DRUGS (3)
  1. METHADONE (NGX) [Suspect]
     Route: 064
  2. BENZODIAZEPINES [Suspect]
     Route: 064
  3. CANNABIS [Suspect]
     Route: 064

REACTIONS (2)
  - CONGENITAL VISUAL ACUITY REDUCED [None]
  - DRUG EXPOSURE DURING PREGNANCY [None]
